FAERS Safety Report 18899157 (Version 1)
Quarter: 2021Q1

REPORT INFORMATION
  Report Type: Spontaneous
  Country: US (occurrence: US)
  Receive Date: 20210216
  Receipt Date: 20210216
  Transmission Date: 20210420
  Serious: Yes (Other)
  Sender: FDA-Public Use
  Company Number: US-PERRIGO-21US001597

PATIENT
  Age: 64 Year
  Sex: Male
  Weight: 108.84 kg

DRUGS (6)
  1. SALINE NASAL [Suspect]
     Active Substance: SODIUM CHLORIDE
     Indication: NASAL DRYNESS
     Dosage: 2 SPRAYS IN EACH NOSTRIL ONCE, THEN 15 MINUTES LATER 1 SPRAY IN RIGHT NOSTRIL AND 2 SPRAYS IN LEFT N
     Route: 045
     Dates: start: 20210130, end: 20210130
  2. SALINE NASAL [Suspect]
     Active Substance: SODIUM CHLORIDE
     Indication: SINUS CONGESTION
     Dosage: 2 SPRAYS IN EACH NOSTRIL, SINGLE
     Route: 045
     Dates: start: 20210125, end: 20210125
  3. ALLERGY                            /00419602/ [Concomitant]
     Indication: HYPERSENSITIVITY
     Dosage: UNK
     Route: 065
     Dates: start: 202101
  4. SYMBICORT [Concomitant]
     Active Substance: BUDESONIDE\FORMOTEROL FUMARATE DIHYDRATE
     Indication: ASTHMA
     Dosage: UNK
     Route: 065
  5. SALINE NASAL [Suspect]
     Active Substance: SODIUM CHLORIDE
     Dosage: UNKNOWN AMOUNT DOWN THROAT, SINGLE
     Route: 048
     Dates: start: 20210131, end: 20210131
  6. OTHER DRUGS FOR OBSTRUCTIVE AIRWAY DISEASES, [Concomitant]
     Active Substance: UNSPECIFIED INGREDIENT
     Indication: ASTHMA
     Dosage: UNK
     Route: 055

REACTIONS (9)
  - Nausea [Not Recovered/Not Resolved]
  - Feeling abnormal [Not Recovered/Not Resolved]
  - Throat irritation [Recovering/Resolving]
  - Nasal discomfort [Recovering/Resolving]
  - Gastritis [Recovering/Resolving]
  - Nervousness [Not Recovered/Not Resolved]
  - Dizziness [Not Recovered/Not Resolved]
  - Off label use [Recovered/Resolved]
  - Epistaxis [Recovered/Resolved]

NARRATIVE: CASE EVENT DATE: 20210131
